FAERS Safety Report 20291192 (Version 2)
Quarter: 2022Q1

REPORT INFORMATION
  Report Type: Spontaneous
  Country: IT (occurrence: IT)
  Receive Date: 20220104
  Receipt Date: 20220128
  Transmission Date: 20220423
  Serious: Yes (Other)
  Sender: FDA-Public Use
  Company Number: IT-LUPIN PHARMACEUTICALS INC.-2021-25965

PATIENT
  Sex: Female
  Weight: 2.37 kg

DRUGS (13)
  1. HYDROCORTISONE [Suspect]
     Active Substance: HYDROCORTISONE
     Indication: Addison^s disease
     Dosage: 100 MILLIGRAM, TID
     Route: 064
  2. HYDROCORTISONE [Suspect]
     Active Substance: HYDROCORTISONE
     Dosage: 50 MILLIGRAM, TID
     Route: 064
  3. HYDROCORTISONE [Suspect]
     Active Substance: HYDROCORTISONE
     Dosage: 100 MILLIGRAM (HIGH DOSE FOR THE FIRST 24 HOURS)
     Route: 064
  4. HYDROCORTISONE [Suspect]
     Active Substance: HYDROCORTISONE
     Dosage: 100 MILLIGRAM (DURING LABOR, THE MOTHER WAS TREATED WITH IV HYDROCORTISONE (100 MG BOLUS), FOLLOWED
     Route: 064
  5. HYDROCORTISONE [Suspect]
     Active Substance: HYDROCORTISONE
     Dosage: 200 MILLIGRAM (DURING LABOR, THE MOTHER WAS TREATED WITH IV HYDROCORTISONE (100 MG BOLUS), FOLLOWED
     Route: 064
  6. HYDROCORTISONE [Suspect]
     Active Substance: HYDROCORTISONE
     Dosage: 10 MILLIGRAM, TID (THE USUAL ORAL DOSAGE REGIMENT FOR CORTICOSTEROIDS WAS RESTORED AND MAINTAINED UN
     Route: 064
  7. BETAMETHASONE [Suspect]
     Active Substance: BETAMETHASONE
     Indication: Prophylaxis
     Dosage: 12 MILLIGRAM
     Route: 064
  8. PROGESTERONE [Suspect]
     Active Substance: PROGESTERONE
     Indication: Complication of pregnancy
     Dosage: 200 MILLIGRAM, QD
     Route: 064
  9. PROGESTERONE [Suspect]
     Active Substance: PROGESTERONE
     Indication: Hormone therapy
  10. HYDROXYPROGESTERONE CAPROATE [Suspect]
     Active Substance: HYDROXYPROGESTERONE CAPROATE
     Indication: Complication of pregnancy
     Dosage: 341 MILLIGRAM
     Route: 064
  11. HYDROXYPROGESTERONE CAPROATE [Suspect]
     Active Substance: HYDROXYPROGESTERONE CAPROATE
     Indication: Hormone therapy
  12. FLUDROCORTISONE [Suspect]
     Active Substance: FLUDROCORTISONE
     Indication: Addison^s disease
     Dosage: 100 MICROGRAM
     Route: 064
  13. FLUDROCORTISONE [Suspect]
     Active Substance: FLUDROCORTISONE
     Dosage: 200 MICROGRAM (UP-TITRATED TO 200 UG IN 6 DAYS)
     Route: 064

REACTIONS (3)
  - Premature baby [Unknown]
  - Low birth weight baby [Unknown]
  - Foetal exposure during pregnancy [Unknown]
